FAERS Safety Report 14568872 (Version 4)
Quarter: 2018Q4

REPORT INFORMATION
  Report Type: Report from Study
  Country: JP (occurrence: JP)
  Receive Date: 20180223
  Receipt Date: 20181204
  Transmission Date: 20190204
  Serious: Yes (Death, Other)
  Sender: FDA-Public Use
  Company Number: JP-PFIZER INC-2018077449

PATIENT
  Age: 59 Year
  Sex: Female
  Weight: 48 kg

DRUGS (10)
  1. RECALBON [Concomitant]
     Active Substance: MINODRONIC ACID
     Route: 048
  2. PREDONINE [PREDNISOLONE ACETATE] [Concomitant]
     Dosage: 5 MG, DAILY
     Dates: start: 20121030, end: 20140916
  3. LANSOPRAZOLE. [Concomitant]
     Active Substance: LANSOPRAZOLE
     Dosage: UNK
     Dates: start: 20150520
  4. TAKEPRON [Concomitant]
     Active Substance: LANSOPRAZOLE
     Route: 048
  5. PREDNISOLONE. [Concomitant]
     Active Substance: PREDNISOLONE
     Dosage: 3 MG, DAILY
     Dates: start: 20150120
  6. FOLIAMIN [Concomitant]
     Active Substance: FOLIC ACID
     Route: 048
  7. NABOAL [DICLOFENAC DIETHYLAMINE] [Concomitant]
     Route: 048
  8. XELJANZ [Suspect]
     Active Substance: TOFACITINIB CITRATE
     Indication: RHEUMATOID ARTHRITIS
     Dosage: 5 MG, 2X/DAY
     Route: 048
     Dates: start: 20140610
  9. RHEUMATREX [METHOTREXATE SODIUM] [Concomitant]
     Dosage: 8 MG, WEEKLY
     Dates: end: 20150119
  10. RHEUMATREX [METHOTREXATE SODIUM] [Concomitant]
     Dosage: 4 MG, WEEKLY
     Route: 048
     Dates: start: 20150120

REACTIONS (1)
  - Lymphoma [Fatal]
